FAERS Safety Report 6066066-0 (Version None)
Quarter: 2009Q1

REPORT INFORMATION
  Report Type: 
  Country: None (occurrence: None)
  Receive Date: 20090202
  Receipt Date: 20090121
  Transmission Date: 20090719
  Serious: Yes (Other)
  Sender: FDA-Public Use
  Company Number: 2009AP000010

PATIENT
  Age: 39 Year
  Sex: Male

DRUGS (4)
  1. OMEPRAZOLE [Suspect]
     Indication: GASTROOESOPHAGEAL REFLUX DISEASE
     Dosage: 20 MG; QD PO, 20 MG; CAP; PO; QD
     Route: 048
     Dates: end: 20090105
  2. METRONIDAZOLE [Concomitant]
  3. CLOTRIMAZOLE [Concomitant]
  4. KETOCONAZOLE [Concomitant]

REACTIONS (1)
  - HYPERSENSITIVITY [None]
